FAERS Safety Report 12167259 (Version 1)
Quarter: 2016Q1

REPORT INFORMATION
  Report Type: Not Available
  Country: SE (occurrence: SE)
  Receive Date: 20160310
  Receipt Date: 20160310
  Transmission Date: 20160526
  Serious: Yes (Other)
  Sender: FDA-Public Use
  Company Number: SE-MUNDIPHARMA DS AND PHARMACOVIGILANCE-GBR-2016-0034489

PATIENT

DRUGS (15)
  1. NORSPAN [Suspect]
     Active Substance: BUPRENORPHINE
     Indication: GROIN PAIN
     Dosage: 5 MCG, Q1H
     Route: 062
  2. CALCICHEW-D3 SPEARMINT [Concomitant]
     Active Substance: CALCIUM\CHOLECALCIFEROL
  3. PROPYLESS [Concomitant]
  4. FOLACIN                            /00024201/ [Concomitant]
     Active Substance: FOLIC ACID
  5. SIMVASTATIN RANBAXY [Concomitant]
  6. METOJECT [Concomitant]
     Active Substance: METHOTREXATE SODIUM
  7. LACTULOSE. [Concomitant]
     Active Substance: LACTULOSE
  8. TROMBYL [Concomitant]
     Active Substance: ASPIRIN
  9. CARDIZEM [Concomitant]
     Active Substance: DILTIAZEM HYDROCHLORIDE
  10. VAGIFEM [Concomitant]
     Active Substance: ESTRADIOL
  11. PROLIA [Concomitant]
     Active Substance: DENOSUMAB
  12. GLYCERYL TRINITRATE [Concomitant]
     Active Substance: NITROGLYCERIN
  13. ESOMEPRAZOL                        /01479302/ [Concomitant]
  14. CANDESARTAN                        /01349502/ [Concomitant]
     Active Substance: CANDESARTAN
  15. PAPAVERIN RECIP [Concomitant]
     Active Substance: PAPAVERINE

REACTIONS (4)
  - Hypoacusis [Unknown]
  - Dizziness [Unknown]
  - Nasal dryness [Unknown]
  - Dry eye [Unknown]
